FAERS Safety Report 26091315 (Version 2)
Quarter: 2025Q4

REPORT INFORMATION
  Report Type: Spontaneous
  Country: US (occurrence: US)
  Receive Date: 20251126
  Receipt Date: 20251222
  Transmission Date: 20260117
  Serious: No
  Sender: ABBVIE
  Company Number: US-ABBVIE-6565066

PATIENT
  Age: 95 Year
  Sex: Female

DRUGS (1)
  1. LUMIGAN [Suspect]
     Active Substance: BIMATOPROST
     Indication: Product used for unknown indication
     Dosage: LUMIGAN 0.01% 5 ML, DOSAGE FORM: SUSPENSION/DROPS
     Route: 047

REACTIONS (1)
  - No adverse event [Unknown]
